FAERS Safety Report 16642721 (Version 1)
Quarter: 2019Q3

REPORT INFORMATION
  Report Type: Spontaneous
  Country: FR (occurrence: FR)
  Receive Date: 20190729
  Receipt Date: 20190729
  Transmission Date: 20191004
  Serious: Yes (Hospitalization)
  Sender: FDA-Public Use
  Company Number: PHHY2019FR172071

PATIENT
  Age: 72 Year
  Sex: Female
  Weight: 83 kg

DRUGS (11)
  1. LOXEN [NICARDIPINE HYDROCHLORIDE] [Suspect]
     Active Substance: NICARDIPINE HYDROCHLORIDE
     Dosage: 100 MG, QD
     Route: 048
     Dates: start: 20190618
  2. JANUVIA [Suspect]
     Active Substance: SITAGLIPTIN PHOSPHATE
     Indication: TYPE 2 DIABETES MELLITUS
     Dosage: 50 MG, QD
     Route: 048
     Dates: start: 2013
  3. STAGID [Suspect]
     Active Substance: METFORMIN PAMOATE
     Indication: TYPE 2 DIABETES MELLITUS
     Dosage: 700 MG, QD
     Route: 048
     Dates: start: 2013
  4. ALDACTONE [Suspect]
     Active Substance: SPIRONOLACTONE
     Dosage: 100 MG, QD
     Route: 048
     Dates: start: 20190601, end: 20190710
  5. LOXEN [NICARDIPINE HYDROCHLORIDE] [Suspect]
     Active Substance: NICARDIPINE HYDROCHLORIDE
     Indication: HYPERTENSION
     Dosage: 50 MG, QD
     Route: 048
     Dates: start: 20190601, end: 20190617
  6. INEXIUM [Suspect]
     Active Substance: ESOMEPRAZOLE
     Indication: PRODUCT USED FOR UNKNOWN INDICATION
     Dosage: 20 MG, QD
     Route: 048
     Dates: start: 2018
  7. MODAMIDE [Suspect]
     Active Substance: AMILORIDE HYDROCHLORIDE
     Indication: HYPERTENSION
     Dosage: 5 MG, QD
     Route: 048
     Dates: end: 20190617
  8. ALDACTONE [Suspect]
     Active Substance: SPIRONOLACTONE
     Indication: HYPERTENSION
     Dosage: 50 MG, QD
     Route: 048
     Dates: start: 2014, end: 20190531
  9. ROSUVASTATIN. [Suspect]
     Active Substance: ROSUVASTATIN
     Indication: DYSLIPIDAEMIA
     Dosage: 5 MG, QD
     Route: 048
     Dates: start: 2013
  10. MODAMIDE [Suspect]
     Active Substance: AMILORIDE HYDROCHLORIDE
     Dosage: 10 MG, QD
     Route: 048
     Dates: start: 20190618, end: 20190710
  11. ATENOLOL. [Suspect]
     Active Substance: ATENOLOL
     Indication: HYPERTENSION
     Dosage: 50 MG, QD
     Route: 048
     Dates: start: 2015

REACTIONS (2)
  - Abdominal pain upper [Not Recovered/Not Resolved]
  - Abdominal pain lower [Not Recovered/Not Resolved]

NARRATIVE: CASE EVENT DATE: 20190415
